FAERS Safety Report 17532857 (Version 4)
Quarter: 2021Q1

REPORT INFORMATION
  Report Type: Spontaneous
  Country: US (occurrence: US)
  Receive Date: 20200312
  Receipt Date: 20210126
  Transmission Date: 20210419
  Serious: No
  Sender: FDA-Public Use
  Company Number: US-PFIZER INC-2020015394

PATIENT
  Age: 64 Year
  Sex: Female

DRUGS (2)
  1. ATORVASTATIN CALCIUM. [Concomitant]
     Active Substance: ATORVASTATIN CALCIUM
     Dosage: 40 MG
     Dates: start: 2020
  2. XELJANZ XR [Suspect]
     Active Substance: TOFACITINIB CITRATE
     Indication: RHEUMATOID ARTHRITIS
     Dosage: 11 MG, DAILY IN THE MORNING
     Route: 048
     Dates: start: 20191210

REACTIONS (5)
  - Stress [Unknown]
  - Insomnia [Recovering/Resolving]
  - Pain [Unknown]
  - Depression [Unknown]
  - Sensitivity to weather change [Unknown]
